FAERS Safety Report 19007736 (Version 4)
Quarter: 2021Q2

REPORT INFORMATION
  Report Type: Spontaneous
  Country: JP (occurrence: JP)
  Receive Date: 20210315
  Receipt Date: 20210527
  Transmission Date: 20210717
  Serious: Yes (Death, Hospitalization, Other)
  Sender: FDA-Public Use
  Company Number: NVSJ2020JP014663

PATIENT
  Age: 3 Month
  Sex: Male
  Weight: 4.29 kg

DRUGS (13)
  1. ILARIS [Suspect]
     Active Substance: CANAKINUMAB
     Dosage: 10 MG/KG
     Route: 058
     Dates: start: 20201120
  2. ILARIS [Suspect]
     Active Substance: CANAKINUMAB
     Dosage: 12 MG/KG
     Route: 058
     Dates: start: 20201030
  3. ILARIS [Suspect]
     Active Substance: CANAKINUMAB
     Dosage: 82.5 MG
     Route: 058
     Dates: start: 20210409, end: 20210409
  4. ILARIS [Suspect]
     Active Substance: CANAKINUMAB
     Dosage: 82.5 MG
     Route: 058
     Dates: start: 20210507, end: 20210507
  5. SAMTIREL [Concomitant]
     Active Substance: ATOVAQUONE
     Indication: PRODUCT USED FOR UNKNOWN INDICATION
     Dosage: UNK
     Route: 065
  6. BAKTAR [Concomitant]
     Active Substance: SULFAMETHOXAZOLE\TRIMETHOPRIM
     Indication: PRODUCT USED FOR UNKNOWN INDICATION
     Dosage: UNK
     Route: 065
  7. ILARIS [Suspect]
     Active Substance: CANAKINUMAB
     Dosage: 75 MG
     Route: 058
     Dates: start: 20210312, end: 20210312
  8. PREDONINE [Concomitant]
     Active Substance: PREDNISOLONE
     Indication: PRODUCT USED FOR UNKNOWN INDICATION
     Dosage: 11 MG
     Route: 065
  9. ILARIS [Suspect]
     Active Substance: CANAKINUMAB
     Indication: AUTOINFLAMMATION WITH INFANTILE ENTEROCOLITIS
     Dosage: UNK
     Route: 058
     Dates: start: 202009
  10. ILARIS [Suspect]
     Active Substance: CANAKINUMAB
     Dosage: 45 MG
     Route: 058
     Dates: start: 20201218
  11. ILARIS [Suspect]
     Active Substance: CANAKINUMAB
     Dosage: 45 MG
     Route: 058
     Dates: start: 20210115
  12. ILARIS [Suspect]
     Active Substance: CANAKINUMAB
     Dosage: 45 MG
     Route: 058
     Dates: start: 20210212
  13. CICLOSPORIN [Suspect]
     Active Substance: CYCLOSPORINE
     Indication: PRODUCT USED FOR UNKNOWN INDICATION
     Dosage: UNK
     Route: 048

REACTIONS (18)
  - Diarrhoea [Not Recovered/Not Resolved]
  - Pneumocystis jirovecii pneumonia [Recovered/Resolved]
  - Concomitant disease aggravated [Unknown]
  - Autoinflammation with infantile enterocolitis [Fatal]
  - Tachycardia [Unknown]
  - Vomiting [Fatal]
  - Vomiting [Recovered/Resolved]
  - Abdominal distension [Unknown]
  - Heart rate increased [Unknown]
  - Disease recurrence [Fatal]
  - Feeding disorder [Fatal]
  - Adrenal insufficiency [Fatal]
  - Pneumonia cytomegaloviral [Recovered/Resolved]
  - Dyspnoea [Recovering/Resolving]
  - Concomitant disease aggravated [Fatal]
  - Haematochezia [Unknown]
  - Product use in unapproved indication [Unknown]
  - Product use issue [Unknown]

NARRATIVE: CASE EVENT DATE: 202010
